FAERS Safety Report 21671782 (Version 1)
Quarter: 2022Q4

REPORT INFORMATION
  Report Type: Report from Study
  Country: US (occurrence: US)
  Receive Date: 20221202
  Receipt Date: 20221202
  Transmission Date: 20230112
  Serious: No
  Sender: FDA-Public Use
  Company Number: US-ABBVIE-22K-163-4454287-00

PATIENT
  Sex: Male

DRUGS (2)
  1. RINVOQ [Suspect]
     Active Substance: UPADACITINIB
     Indication: Psoriasis
     Dosage: 15 MG?ONSET DATES OF THE EVENTS COULD NOT BE CAPTURED DUE TO PARTIAL DATES.
     Route: 048
     Dates: start: 20220528
  2. RINVOQ [Suspect]
     Active Substance: UPADACITINIB
     Indication: Psoriasis
     Dosage: MAINTENANCE DOSE
     Route: 058
     Dates: start: 202203

REACTIONS (6)
  - Joint injury [Unknown]
  - Psoriasis [Recovered/Resolved]
  - Arthralgia [Recovering/Resolving]
  - Fall [Unknown]
  - Drug ineffective [Unknown]
  - Psoriasis [Unknown]
